FAERS Safety Report 7135815-2 (Version None)
Quarter: 2010Q4

REPORT INFORMATION
  Report Type: 
  Country: None (occurrence: None)
  Receive Date: 20101203
  Receipt Date: 20101117
  Transmission Date: 20110411
  Serious: Yes (Other)
  Sender: FDA-Public Use
  Company Number: US-ELI_LILLY_AND_COMPANY-US201008008805

PATIENT
  Sex: Male

DRUGS (5)
  1. ZYPREXA ZYDIS [Suspect]
     Indication: SCHIZOPHRENIA
     Dosage: 7.5 MG, DAILY (1/D)
     Route: 065
  2. ZYPREXA ZYDIS [Suspect]
     Dosage: 10 MG, DAILY (1/D)
     Route: 065
     Dates: start: 20010101, end: 20060101
  3. ZANTAC [Concomitant]
  4. RANITIDINE [Concomitant]
  5. AMOXICILLIN [Concomitant]
     Indication: DENTAL CARIES

REACTIONS (9)
  - CARDIAC DISORDER [None]
  - CARDIAC MURMUR [None]
  - CHEST PAIN [None]
  - DERMATITIS ALLERGIC [None]
  - DRUG INEFFECTIVE [None]
  - EYE OPERATION [None]
  - FOLLICULITIS [None]
  - HYPERHIDROSIS [None]
  - SKIN DISCOLOURATION [None]
